FAERS Safety Report 9108991 (Version 6)
Quarter: 2015Q1

REPORT INFORMATION
  Report Type: Spontaneous
  Country: US (occurrence: US)
  Receive Date: 20130222
  Receipt Date: 20150126
  Transmission Date: 20150721
  Serious: Yes (Death, Life-Threatening, Hospitalization, Disabling, Other)
  Sender: FDA-Public Use
  Company Number: US-MERCK-1302USA009948

PATIENT
  Sex: Female
  Weight: 70.3 kg

DRUGS (3)
  1. JANUVIA [Suspect]
     Active Substance: SITAGLIPTIN PHOSPHATE
     Indication: TYPE 2 DIABETES MELLITUS
     Dosage: 100 MG, QD
     Route: 048
     Dates: start: 20080609, end: 20100624
  2. JANUVIA [Suspect]
     Active Substance: SITAGLIPTIN PHOSPHATE
     Indication: DIABETES MELLITUS INADEQUATE CONTROL
  3. JANUMET [Suspect]
     Active Substance: METFORMIN HYDROCHLORIDE\SITAGLIPTIN PHOSPHATE
     Indication: TYPE 2 DIABETES MELLITUS
     Dosage: 50 MG/1000 MG, BID
     Route: 048
     Dates: start: 20100525

REACTIONS (42)
  - Metastases to lymph nodes [Unknown]
  - Wheezing [Unknown]
  - Hysterectomy [Unknown]
  - Lipoma [Unknown]
  - Hyperlipidaemia [Unknown]
  - Pulmonary mass [Unknown]
  - Leukocytosis [Unknown]
  - Metastases to peritoneum [Unknown]
  - Intestinal obstruction [Recovered/Resolved]
  - Thyroid operation [Unknown]
  - Hepatic steatosis [Unknown]
  - Mucosal inflammation [Unknown]
  - Gastrooesophageal reflux disease [Unknown]
  - Type 1 diabetes mellitus [Unknown]
  - Pancreatic carcinoma metastatic [Fatal]
  - Aneurysm [Unknown]
  - Hereditary haemorrhagic telangiectasia [Unknown]
  - Shoulder operation [Unknown]
  - Female sterilisation [Unknown]
  - Rotator cuff syndrome [Unknown]
  - Anaemia [Unknown]
  - Sinusitis [Unknown]
  - Osteoarthritis [Unknown]
  - Tonsillectomy [Unknown]
  - Urinary tract infection [Unknown]
  - Adrenal adenoma [Unknown]
  - Abscess [Unknown]
  - Infection [Unknown]
  - Urticaria [Unknown]
  - Cough [Unknown]
  - Pancreaticoduodenectomy [Unknown]
  - Thyroid cancer [Unknown]
  - Cholecystectomy [Unknown]
  - Hypersensitivity [Unknown]
  - Renal cyst [Unknown]
  - Anxiety [Unknown]
  - Dyspnoea [Unknown]
  - Appendicectomy [Unknown]
  - Coronary artery disease [Unknown]
  - Small intestinal obstruction [Unknown]
  - Neutropenia [Unknown]
  - Hypertension [Unknown]

NARRATIVE: CASE EVENT DATE: 2008
